FAERS Safety Report 4755144-1 (Version None)
Quarter: 2005Q3

REPORT INFORMATION
  Report Type: 
  Country: None (occurrence: None)
  Receive Date: 20050829
  Receipt Date: 20050825
  Transmission Date: 20060218
  Serious: Yes (Other)
  Sender: FDA-Public Use
  Company Number: DK-BRISTOL-MYERS SQUIBB COMPANY-13090527

PATIENT
  Age: 52 Year
  Sex: Male
  Weight: 60 kg

DRUGS (3)
  1. EFAVIRENZ [Suspect]
  2. TENOFOVIR [Suspect]
  3. LAMIVUDINE [Suspect]

REACTIONS (3)
  - CONSTIPATION [None]
  - RENAL FAILURE ACUTE [None]
  - WEIGHT DECREASED [None]
